FAERS Safety Report 5820061-2 (Version None)
Quarter: 2008Q3

REPORT INFORMATION
  Report Type: 
  Country: None (occurrence: None)
  Receive Date: 20080724
  Receipt Date: 20080717
  Transmission Date: 20090109
  Serious: Yes (Other)
  Sender: FDA-Public Use
  Company Number: US-JNJFOC-20080704602

PATIENT
  Sex: Male

DRUGS (6)
  1. RISPERDAL [Suspect]
     Indication: SCHIZOPHRENIA
     Route: 048
     Dates: start: 19940101
  2. METFORMIN [Concomitant]
     Indication: HYPERGLYCAEMIA
  3. GLYBURIDE [Concomitant]
     Indication: HYPERGLYCAEMIA
  4. LANTUS [Concomitant]
     Indication: HYPERGLYCAEMIA
     Dosage: 20 UNITS AT BEDTIME.
     Route: 058
  5. FLOMAX [Concomitant]
     Indication: URINARY INCONTINENCE
  6. DEPAKOTE [Concomitant]

REACTIONS (2)
  - DIABETES MELLITUS [None]
  - WEIGHT INCREASED [None]
